FAERS Safety Report 7733736 (Version 5)
Quarter: 2012Q4

REPORT INFORMATION
  Report Type: 
  Country: BE (occurrence: BE)
  Receive Date: 20101223
  Receipt Date: 20121218
  Transmission Date: 20130627
  Serious: Yes (Hospitalization, Other)
  Sender: FDA-Public Use
  Company Number: BE-GENZYME-CLOF-1001346

PATIENT
  Age: 39 Year
  Sex: Female
  Weight: 74 kg

DRUGS (16)
  1. EVOLTRA [Suspect]
     Indication: ACUTE MYELOID LEUKAEMIA
     Dosage: 27.15 mg, qdx5
     Route: 042
     Dates: start: 20101103, end: 20101107
  2. CYTARABINE [Suspect]
     Indication: ACUTE MYELOID LEUKAEMIA
     Dosage: 3620 mg, UNK
     Route: 042
     Dates: start: 20101103, end: 20101108
  3. AMSACRINE [Suspect]
     Indication: ACUTE MYELOID LEUKAEMIA
     Dosage: 217 mg, UNK
     Route: 042
     Dates: start: 20101106, end: 20101108
  4. MITOXANTRONE [Suspect]
     Indication: ACUTE MYELOID LEUKAEMIA
     Dosage: 18 mg, qdx5
     Route: 042
     Dates: start: 20110201, end: 20110205
  5. ETOPOSIDE [Suspect]
     Indication: ACUTE MYELOID LEUKAEMIA
     Dosage: 180 mg, qdx5
     Route: 042
     Dates: start: 20110201, end: 20110205
  6. DIFLUCAN [Concomitant]
     Indication: PROPHYLAXIS
     Dosage: 200 mg, UNK
     Route: 048
     Dates: start: 20100927, end: 20101210
  7. RANITIDINE [Concomitant]
     Indication: PROPHYLAXIS
     Dosage: 300 mg, UNK
     Route: 048
     Dates: start: 20100927, end: 20101210
  8. ORGAMETRIL [Concomitant]
     Indication: PROPHYLAXIS
     Dosage: 5 mg, UNK
     Route: 048
     Dates: start: 20100927, end: 20101210
  9. ZOVIRAX [Concomitant]
     Indication: PROPHYLAXIS
     Dosage: 1200 mg, UNK
     Route: 048
     Dates: start: 20101203, end: 20101212
  10. CIPROXINE [Concomitant]
     Indication: PYREXIA
     Dosage: 1 g, UNK
     Route: 048
     Dates: start: 20101202, end: 20101210
  11. CIPROXINE [Concomitant]
     Indication: INFECTION PROPHYLAXIS
     Dosage: 1000 mg, UNK
     Route: 048
     Dates: start: 20101202, end: 20110308
  12. VORICONAZOLE [Concomitant]
     Indication: ANTIFUNGAL PROPHYLAXIS
     Dosage: 400 mg, UNK
     Route: 048
     Dates: start: 20110120, end: 20110308
  13. ACICLOVIR [Concomitant]
     Indication: ANTIVIRAL PROPHYLAXIS
     Dosage: 1200 mg, UNK
     Route: 048
     Dates: start: 20101203, end: 20110308
  14. ORGAMETRIL [Concomitant]
     Indication: PROPHYLAXIS
     Dosage: 2 mg, UNK
     Route: 048
     Dates: start: 20100927, end: 20110308
  15. PANTOPRAZOLE [Concomitant]
     Indication: PROPHYLAXIS AGAINST GASTROINTESTINAL ULCER
     Dosage: 20 mg, UNK
     Route: 048
     Dates: start: 20110205, end: 20110308
  16. ESCITALOPRAM [Concomitant]
     Indication: PROPHYLAXIS
     Dosage: 10 mg, UNK
     Route: 048
     Dates: start: 20101205, end: 20110308

REACTIONS (4)
  - Thrombocytopenia [Recovered/Resolved]
  - Thrombocytopenia [Recovered/Resolved]
  - Bronchopulmonary aspergillosis [Recovered/Resolved with Sequelae]
  - Neutropenia [Recovered/Resolved]
